FAERS Safety Report 18349177 (Version 1)
Quarter: 2020Q4

REPORT INFORMATION
  Report Type: Spontaneous
  Country: US (occurrence: US)
  Receive Date: 20201006
  Receipt Date: 20201006
  Transmission Date: 20210114
  Serious: No
  Sender: FDA-Public Use
  Company Number: None

PATIENT
  Sex: Male
  Weight: 95.25 kg

DRUGS (16)
  1. ALBUTEROL SULFATE HFA [Concomitant]
     Active Substance: ALBUTEROL SULFATE
  2. LACTO.ACIDOPHILUSBIF.ANIMALIS [Concomitant]
  3. VITAMIN D3 [Concomitant]
     Active Substance: CHOLECALCIFEROL
  4. MECLIZINE HCL [Concomitant]
     Active Substance: MECLIZINE HYDROCHLORIDE
  5. ZETIA [Concomitant]
     Active Substance: EZETIMIBE
  6. ASPIRIN 81 [Concomitant]
     Active Substance: ASPIRIN
  7. LUPRON DEPOT (3-MONTH) [Concomitant]
  8. NITROSTAT [Concomitant]
     Active Substance: NITROGLYCERIN
  9. PLAVIX [Concomitant]
     Active Substance: CLOPIDOGREL BISULFATE
  10. ABIRATERONE ACETATE. [Suspect]
     Active Substance: ABIRATERONE ACETATE
     Indication: PROSTATE CANCER
     Route: 048
     Dates: start: 20200328, end: 20201006
  11. PREDNISONE. [Concomitant]
     Active Substance: PREDNISONE
  12. ACETAMINOPHEN. [Concomitant]
     Active Substance: ACETAMINOPHEN
  13. FLONASE [Concomitant]
     Active Substance: FLUTICASONE PROPIONATE
  14. METOPROLOL SUCCINATE ER [Concomitant]
     Active Substance: METOPROLOL SUCCINATE
  15. PROTONIX [Concomitant]
     Active Substance: PANTOPRAZOLE SODIUM
  16. SENNOSIDES. [Concomitant]
     Active Substance: SENNOSIDES

REACTIONS (1)
  - Disease progression [None]
